FAERS Safety Report 9931156 (Version 2)
Quarter: 2014Q1

REPORT INFORMATION
  Report Type: Spontaneous
  Country: US (occurrence: US)
  Receive Date: 20140227
  Receipt Date: 20140305
  Transmission Date: 20141002
  Serious: Yes (Other)
  Sender: FDA-Public Use
  Company Number: US-ROCHE-1356824

PATIENT
  Age: 41 Year
  Sex: Female
  Weight: 124.85 kg

DRUGS (16)
  1. XOLAIR [Suspect]
     Indication: ASTHMA
     Route: 058
     Dates: start: 20130926, end: 20130926
  2. ADVAIR DISKUS [Concomitant]
     Dosage: 500-50 MCG DISKUS INHALER
     Route: 065
  3. NASONEX [Concomitant]
     Dosage: 50 MCG/ACTUATION NASAL; SPRAY
     Route: 065
  4. PROVENTIL [Concomitant]
     Dosage: 2.5 MG/3 ML NEBULIZER SOLUTION
     Route: 065
  5. VENTOLIN HFA [Concomitant]
     Dosage: 90 MCG/ACTUATION INHALER
     Route: 065
  6. ASTEPRO [Concomitant]
     Dosage: 205.5 MCG NASAL SPRAY
     Route: 065
  7. ADVIL [Concomitant]
     Route: 065
  8. LANTUS SOLOSTAR [Concomitant]
     Dosage: 100 UNIT/ML
     Route: 065
  9. IPRATROPIUM BROMIDE [Concomitant]
     Dosage: 18 MCG ACTUATION AERO
     Route: 065
  10. COZAAR [Concomitant]
     Route: 065
  11. SINGULAIR [Concomitant]
     Route: 065
  12. PRAVACHOL [Concomitant]
     Route: 065
  13. DELTASONE [Concomitant]
     Route: 065
  14. DELTASONE [Concomitant]
     Route: 065
  15. ZANAFLEX [Concomitant]
     Dosage: 1 TABLET (4 MG TOTAL) BY MOUTH EVERY 8 HOURS AS NEEDED
     Route: 048
  16. ULTRAM [Concomitant]
     Dosage: 1 TABLET (50 MG TOTAL) BY MOUTH EVERY 8 HOURS AS NEEDED FOR PAIN
     Route: 048

REACTIONS (5)
  - Dyspnoea [Recovered/Resolved]
  - Wheezing [Recovered/Resolved]
  - Hyperhidrosis [Recovered/Resolved]
  - Flushing [Recovered/Resolved]
  - Asthma [Unknown]
